FAERS Safety Report 14851517 (Version 9)
Quarter: 2022Q3

REPORT INFORMATION
  Report Type: Report from Study
  Country: DE (occurrence: DE)
  Receive Date: 20180507
  Receipt Date: 20220714
  Transmission Date: 20221026
  Serious: Yes (Life-Threatening, Hospitalization, Other)
  Sender: FDA-Public Use
  Company Number: DE-TAKEDA-2017MPI007386

PATIENT
  Age: 53 Year
  Sex: Male
  Weight: 87 kg

DRUGS (17)
  1. CYCLOPHOSPHAMIDE [Suspect]
     Active Substance: CYCLOPHOSPHAMIDE
     Indication: Plasma cell myeloma
     Dosage: DOSAGE FORM: UNSPECIFIED
     Route: 042
     Dates: start: 20170627, end: 20170630
  2. DECADRON [Suspect]
     Active Substance: DEXAMETHASONE
     Indication: Plasma cell myeloma
     Dosage: DOSAGE FORM: UNSPECIFIED, ON DAYS 1,8, 15 OF CYCLE 1 AND 2; DAY 1 AND 11 OF CYCLE 3 AND
     Route: 048
     Dates: start: 20170627, end: 20170630
  3. DECADRON [Suspect]
     Active Substance: DEXAMETHASONE
     Dosage: DOSAGE FORM: UNSPECIFIED, ON DAYS 2, 4-5, 9, 11-12
     Route: 048
     Dates: start: 20170307, end: 20170619
  4. DECADRON [Suspect]
     Active Substance: DEXAMETHASONE
     Dosage: DOSAGE FORM: UNSPECIFIED
     Route: 042
     Dates: start: 20170307, end: 20170619
  5. DECADRON [Suspect]
     Active Substance: DEXAMETHASONE
     Dosage: DOSAGE FORM: UNSPECIFIED, C 1 PLUS 2, DAY 1,8, 15, C3 PLUS 4 DAY 1, 11
     Route: 048
     Dates: start: 20170307, end: 20170619
  6. DECADRON [Suspect]
     Active Substance: DEXAMETHASONE
     Dosage: DOSAGE FORM: UNSPECIFIED, ON DAYS 1,8, 15 OF CYCLE 1 AND 2; DAY 1 AND 11 OF CYCLE 3 AND 4
     Route: 048
     Dates: start: 20171113, end: 20171224
  7. DECADRON [Suspect]
     Active Substance: DEXAMETHASONE
     Dosage: DOSAGE FORM: UNSPECIFIED, ON DAY 1 AND DAY 15
     Route: 048
     Dates: start: 20180206, end: 20180725
  8. REVLIMID [Suspect]
     Active Substance: LENALIDOMIDE
     Indication: Plasma cell myeloma
     Dosage: DOSAGE FORM: UNSPECIFIED, FOR 2 WEEKS AND 1 WEEK OFF
     Route: 048
     Dates: start: 20170307, end: 20170619
  9. REVLIMID [Suspect]
     Active Substance: LENALIDOMIDE
     Dosage: DOSAGE FORM: UNSPECIFIED
     Route: 048
     Dates: start: 20171113, end: 20171224
  10. REVLIMID [Suspect]
     Active Substance: LENALIDOMIDE
     Dosage: DOSAGE FORM: UNSPECIFIED
     Route: 048
     Dates: start: 20180206, end: 20180327
  11. ADRIAMYCIN [Suspect]
     Active Substance: DOXORUBICIN HYDROCHLORIDE
     Indication: Plasma cell myeloma
     Dosage: 15 MG/M2,PRN
     Route: 042
     Dates: start: 20170627, end: 20170630
  12. VELCADE [Suspect]
     Active Substance: BORTEZOMIB
     Indication: Plasma cell myeloma
     Dosage: DOSAGE FORM: LYOPHILIZED POWDER, ON DAYS 1, 4, 8,  11 AND ONE WEEK OFF OF 21 DAY CYCLE; 2.6 MG TWICE
     Route: 058
     Dates: start: 20170307, end: 20170619
  13. VELCADE [Suspect]
     Active Substance: BORTEZOMIB
     Dosage: DOSAGE FORM: LYOPHILIZED POWDER
     Route: 058
     Dates: start: 20171113, end: 20171224
  14. EMPLICITI [Suspect]
     Active Substance: ELOTUZUMAB
     Indication: Plasma cell myeloma
     Dosage: DOSAGE FORM: UNSPECIFIED, C1 PLUS 2, DAY1, 8, 15, C3 PLUS 4 DAY 1, 11
     Route: 042
     Dates: start: 20170307, end: 20170619
  15. MELPHALAN [Concomitant]
     Active Substance: MELPHALAN
     Indication: Product used for unknown indication
     Dosage: DOSAGE FORM: UNSPECIFIED
     Route: 042
  16. MELPHALAN [Concomitant]
     Active Substance: MELPHALAN
     Dosage: DOSAGE FORM: UNSPECIFIED
     Dates: start: 20170815, end: 20170816
  17. HEPARIN [Concomitant]
     Active Substance: HEPARIN SODIUM
     Dosage: DOSAGE FORM: UNSPECIFIED
     Route: 065

REACTIONS (11)
  - Rectal perforation [Recovered/Resolved with Sequelae]
  - Surgery [Recovered/Resolved with Sequelae]
  - Malabsorption [Recovered/Resolved with Sequelae]
  - Colon operation [Recovered/Resolved with Sequelae]
  - Ileostomy [Recovered/Resolved]
  - Decreased appetite [Recovered/Resolved with Sequelae]
  - Peritonitis [Recovered/Resolved with Sequelae]
  - Abdominal wall abscess [Recovered/Resolved]
  - Vomiting [Recovered/Resolved with Sequelae]
  - Nausea [Recovered/Resolved with Sequelae]
  - Septic shock [Recovered/Resolved with Sequelae]

NARRATIVE: CASE EVENT DATE: 20170405
